FAERS Safety Report 5636777-7 (Version None)
Quarter: 2008Q1

REPORT INFORMATION
  Report Type: 
  Country: None (occurrence: None)
  Receive Date: 20080219
  Receipt Date: 20080206
  Transmission Date: 20080703
  Serious: Yes (Hospitalization)
  Sender: FDA-Public Use
  Company Number: 2008S1002120

PATIENT
  Age: 59 Year
  Sex: Female

DRUGS (1)
  1. ACYCLOVIR [Suspect]
     Indication: HERPES ZOSTER OPHTHALMIC
     Dosage: 250 MG; 3 TIMES A DAY; INTRAVENOUS
     Route: 042

REACTIONS (15)
  - AGITATION [None]
  - BLOOD PRESSURE INCREASED [None]
  - BLOOD SODIUM DECREASED [None]
  - DRUG TOXICITY [None]
  - ELECTROENCEPHALOGRAM ABNORMAL [None]
  - EPILEPSY [None]
  - HAEMODIALYSIS [None]
  - HALLUCINATION [None]
  - HEART RATE INCREASED [None]
  - INCOHERENT [None]
  - LETHARGY [None]
  - NEUROTOXICITY [None]
  - REFUSAL OF TREATMENT BY RELATIVE [None]
  - RENAL FAILURE ACUTE [None]
  - SOMNOLENCE [None]
